FAERS Safety Report 9299386 (Version 2)
Quarter: 2013Q4

REPORT INFORMATION
  Report Type: Spontaneous
  Country: US (occurrence: US)
  Receive Date: 20130520
  Receipt Date: 20131108
  Transmission Date: 20140711
  Serious: Yes (Hospitalization)
  Sender: FDA-Public Use
  Company Number: US-B.I. PHARMACEUTICALS,INC./RIDGEFIELD-2013-BI-13927BP

PATIENT
  Age: 76 Year
  Sex: Male
  Weight: 112.94 kg

DRUGS (11)
  1. PRADAXA [Suspect]
     Indication: ANTICOAGULANT THERAPY
     Dosage: 150 MG
     Route: 048
     Dates: start: 20120529, end: 20120713
  2. PRADAXA [Suspect]
     Indication: ATRIAL FIBRILLATION
  3. ASPIRIN [Suspect]
     Dosage: 81 MG
     Dates: start: 20060410, end: 20130713
  4. LIPITOR [Concomitant]
     Dosage: 10 MG
     Route: 048
     Dates: start: 20111207
  5. ZESTRIL [Concomitant]
     Dosage: 40 MG
     Route: 048
     Dates: start: 20120620
  6. CLARITIN [Concomitant]
     Route: 048
     Dates: start: 20060410
  7. SLO-NIACIN [Concomitant]
     Dosage: 2000 MG
     Route: 048
     Dates: start: 20070410
  8. COREG [Concomitant]
     Dosage: 50 MG
     Route: 048
     Dates: start: 20080729
  9. DIGOXIN [Concomitant]
     Dosage: 0.125 MG
     Route: 048
     Dates: start: 20120709
  10. FISH OIL [Concomitant]
     Dosage: 1000 MG
     Route: 048
     Dates: start: 20110719
  11. VITAMIN D [Concomitant]
     Route: 048

REACTIONS (2)
  - Upper gastrointestinal haemorrhage [Recovered/Resolved]
  - Iron deficiency anaemia [Unknown]
